FAERS Safety Report 17736693 (Version 1)
Quarter: 2020Q2

REPORT INFORMATION
  Report Type: Spontaneous
  Country: CN (occurrence: CN)
  Receive Date: 20200501
  Receipt Date: 20200501
  Transmission Date: 20200714
  Serious: Yes (Death)
  Sender: FDA-Public Use
  Company Number: CN-ROCHE-2590975

PATIENT
  Age: 40 Year
  Sex: Female

DRUGS (10)
  1. PIRARUBICIN [Concomitant]
     Active Substance: PIRARUBICIN
     Dosage: DAY2, R-CHOP REGIMEN
     Route: 065
     Dates: start: 20190801
  2. CYCLOPHOSPHAMIDE. [Concomitant]
     Active Substance: CYCLOPHOSPHAMIDE
     Dosage: DAY2, R2-CHOP REGIMEN
     Route: 065
     Dates: start: 20190827
  3. PIRARUBICIN [Concomitant]
     Active Substance: PIRARUBICIN
     Dosage: DAY2, R2-CHOP REGIMEN
     Route: 065
     Dates: start: 20190827
  4. PREDNISONE. [Concomitant]
     Active Substance: PREDNISONE
     Dosage: DAY2-6, R-CHOP REGIMEN
     Route: 065
     Dates: start: 20190801
  5. VINDESINE [Concomitant]
     Active Substance: VINDESINE
     Dosage: DAY2, R2-CHOP REGIMEN
     Route: 065
     Dates: start: 20190827
  6. PREDNISONE. [Concomitant]
     Active Substance: PREDNISONE
     Dosage: DAY2-6, R2-CHOP REGIMEN
     Route: 065
     Dates: start: 20190827
  7. LENALIDOMIDE [Concomitant]
     Active Substance: LENALIDOMIDE
     Dosage: DAY1-14, R2-CHOP REGIMEN
     Route: 065
     Dates: start: 20190827
  8. CYCLOPHOSPHAMIDE. [Concomitant]
     Active Substance: CYCLOPHOSPHAMIDE
     Indication: DIFFUSE LARGE B-CELL LYMPHOMA
     Dosage: DAY2, R-CHOP REGIMEN
     Route: 065
     Dates: start: 20190801
  9. MABTHERA [Suspect]
     Active Substance: RITUXIMAB
     Indication: DIFFUSE LARGE B-CELL LYMPHOMA
     Dosage: DAY1, R-CHOP REGIMEN
     Route: 042
     Dates: start: 20190801
  10. VINDESINE [Concomitant]
     Active Substance: VINDESINE
     Dosage: DAY2, R-CHOP REGIMEN
     Route: 065
     Dates: start: 20190801

REACTIONS (4)
  - Spondylolysis [Unknown]
  - Gastrointestinal disorder [Recovering/Resolving]
  - Death [Fatal]
  - Spondylolisthesis [Unknown]

NARRATIVE: CASE EVENT DATE: 201909
